FAERS Safety Report 16773914 (Version 1)
Quarter: 2019Q3

REPORT INFORMATION
  Report Type: Spontaneous
  Country: US (occurrence: US)
  Receive Date: 20190904
  Receipt Date: 20190904
  Transmission Date: 20191005
  Serious: Yes (Hospitalization, Other)
  Sender: FDA-Public Use
  Company Number: US-BAXTER-2019BAX017012

PATIENT
  Age: 57 Year
  Sex: Male

DRUGS (12)
  1. MESNEX [Suspect]
     Active Substance: MESNA
     Indication: DIFFUSE LARGE B-CELL LYMPHOMA
     Dosage: DAY 1-5 WITH MESNA: 4 ALTERNATING CYCLES OF R-CODOX-M (CYCLE 1 AND 3) AND R-IVAC (CYCLE 2 AND 4))
     Route: 042
  2. IFEX [Suspect]
     Active Substance: IFOSFAMIDE
     Indication: DIFFUSE LARGE B-CELL LYMPHOMA
     Dosage: DAY 1-5 WITH MESNA (CYCLE 2, 4): 4 ALTERNATING CYCLES OF R-CODOX-M (CYCLE 1,3), R-IVAC (CYCLE 2,4)
     Route: 042
  3. DOXORUBICIN [Suspect]
     Active Substance: DOXORUBICIN
     Indication: DIFFUSE LARGE B-CELL LYMPHOMA
     Dosage: DAY 1 (CYCLE 1 AND 3), 4 ALTERNATING CYCLES OF R-CODOX-M (CYCLE 1 AND 3) AND R-IVAC (CYCLE 2 AND 4)
     Route: 042
  4. CYCLOPHOSPHAMIDE FOR INJECTION, USP [Suspect]
     Active Substance: CYCLOPHOSPHAMIDE
     Indication: DIFFUSE LARGE B-CELL LYMPHOMA
     Dosage: DAY 1-4  (CYCLE 1 AND 3): 4 ALTERNATING CYCLES:  R-CODOX-M (CYCLE 1 AND 3), R-IVAC (CYCLE 2 AND 4)
     Route: 042
  5. CYTARABINE. [Suspect]
     Active Substance: CYTARABINE
     Indication: DIFFUSE LARGE B-CELL LYMPHOMA
     Dosage: 4 ALTERNATING CYCLES OF R-CODOX-M (CYCLE 1 AND 3) AND R-IVAC (CYCLE 2 AND 4) ON DAYS 1,2 (4 DOSES)
     Route: 042
  6. METHOTREXATE. [Suspect]
     Active Substance: METHOTREXATE
     Dosage: ON D5 (4 ALTERNATING CYCLES: R-CODOX-M (CYCLE 1 AND 3) AND R-IVAC (CYCLE 2 AND 4)
     Route: 037
  7. VINCRISTINE [Suspect]
     Active Substance: VINCRISTINE
     Indication: DIFFUSE LARGE B-CELL LYMPHOMA
     Dosage: DAY 1-2  (CYCLE 1 AND 3): 4 ALTERNATING CYCLES OF R-CODOX-M (CYCLE 1 AND 3), R-IVAC (CYCLE 2 AND 4)
     Route: 042
  8. RITUXIMAB. [Suspect]
     Active Substance: RITUXIMAB
     Dosage: ON DAY 1 (CYCLE 1, 4): 4 ALTERNATING CYCLES OF R-CODOX-M (CYCLE 1 AND 3) AND R-IVAC (CYCLE 2 AND 4)
     Route: 042
  9. METHOTREXATE. [Suspect]
     Active Substance: METHOTREXATE
     Indication: DIFFUSE LARGE B-CELL LYMPHOMA
     Dosage: DAY 1-2  (CYCLE 1, 3): 4 ALTERNATING CYCLES OF R-CODOX-M (CYCLE 1 AND 3) AND R-IVAC (CYCLE 2 AND 4)
     Route: 042
  10. ETOPOSIDE. [Suspect]
     Active Substance: ETOPOSIDE
     Indication: DIFFUSE LARGE B-CELL LYMPHOMA
     Dosage: DAY 1-5: 4 ALTERNATING CYCLES OF R-CODOX-M (CYCLE 1 AND 3) AND R-IVAC (CYCLE 2 AND 4)
     Route: 042
  11. RITUXIMAB. [Suspect]
     Active Substance: RITUXIMAB
     Indication: DIFFUSE LARGE B-CELL LYMPHOMA
     Dosage: 4 ALTERNATING CYCLES OF R-CODOX-M (CYCLE 1 AND 3) AND R-IVAC (CYCLE 2 AND 4) ON DAY 1
     Route: 042
  12. FOLINIC ACID [Suspect]
     Active Substance: LEUCOVORIN
     Indication: DIFFUSE LARGE B-CELL LYMPHOMA
     Dosage: 8TH DAY CYCLE 1 AND 3: 4 ALTERNATING CYCLES OF R-CODOX-M (CYCLE 1 AND 3) AND R-IVAC (CYCLE 2 AND 4)
     Route: 042

REACTIONS (7)
  - Colitis [Recovered/Resolved]
  - Acute kidney injury [Recovered/Resolved]
  - Febrile neutropenia [Unknown]
  - Thrombocytopenia [Unknown]
  - Transaminases increased [Recovered/Resolved]
  - Weight decreased [Unknown]
  - Anaemia [Unknown]
